FAERS Safety Report 9757825 (Version 2)
Quarter: 2014Q2

REPORT INFORMATION
  Report Type: Spontaneous
  Country: US (occurrence: US)
  Receive Date: 20131216
  Receipt Date: 20140619
  Transmission Date: 20141212
  Serious: Yes (Other)
  Sender: FDA-Public Use
  Company Number: US-AMGEN-USASP2013087368

PATIENT
  Age: 49 Year
  Sex: Male

DRUGS (2)
  1. ENBREL [Suspect]
     Indication: ANKYLOSING SPONDYLITIS
     Dosage: 50 MG, QWK
     Route: 065
     Dates: start: 20061201
  2. ALEVE [Suspect]
     Indication: PRODUCT USED FOR UNKNOWN INDICATION
     Dosage: UNK
     Route: 065

REACTIONS (25)
  - Type 2 diabetes mellitus [Not Recovered/Not Resolved]
  - Skin cancer [Recovered/Resolved]
  - Basal cell carcinoma [Recovered/Resolved]
  - Staphylococcal infection [Recovered/Resolved]
  - Postoperative wound infection [Recovered/Resolved]
  - Ankylosing spondylitis [Not Recovered/Not Resolved]
  - Exostosis [Not Recovered/Not Resolved]
  - Agitation [Not Recovered/Not Resolved]
  - Head discomfort [Not Recovered/Not Resolved]
  - Eye disorder [Not Recovered/Not Resolved]
  - Sinus headache [Not Recovered/Not Resolved]
  - Discomfort [Not Recovered/Not Resolved]
  - Malaise [Not Recovered/Not Resolved]
  - Dizziness [Not Recovered/Not Resolved]
  - Frustration [Not Recovered/Not Resolved]
  - Photophobia [Not Recovered/Not Resolved]
  - Sleep disorder due to a general medical condition [Not Recovered/Not Resolved]
  - Plantar fasciitis [Not Recovered/Not Resolved]
  - Astigmatism [Not Recovered/Not Resolved]
  - Hepatic steatosis [Unknown]
  - Impaired driving ability [Not Recovered/Not Resolved]
  - Blood pressure increased [Not Recovered/Not Resolved]
  - Rotator cuff syndrome [Recovered/Resolved]
  - Musculoskeletal stiffness [Not Recovered/Not Resolved]
  - Kyphosis [Not Recovered/Not Resolved]
